FAERS Safety Report 16657376 (Version 2)
Quarter: 2019Q3

REPORT INFORMATION
  Report Type: Report from Study
  Country: US (occurrence: US)
  Receive Date: 20190801
  Receipt Date: 20190815
  Transmission Date: 20191004
  Serious: No
  Sender: FDA-Public Use
  Company Number: US-SA-2019SA205012

PATIENT
  Age: 86 Year
  Sex: Female

DRUGS (2)
  1. INSULIN GLARGINE [Suspect]
     Active Substance: INSULIN GLARGINE
     Indication: TYPE 2 DIABETES MELLITUS
     Dosage: 10 U, QD
     Route: 065
  2. INSULIN GLARGINE [Suspect]
     Active Substance: INSULIN GLARGINE
     Dosage: 14 U, QD
     Route: 065

REACTIONS (6)
  - Glycosylated haemoglobin increased [Unknown]
  - Speech disorder [Unknown]
  - Product storage error [Unknown]
  - Blood glucose increased [Unknown]
  - Drug ineffective [Unknown]
  - Wrong technique in product usage process [Unknown]
